FAERS Safety Report 5767312-0 (Version None)
Quarter: 2008Q2

REPORT INFORMATION
  Report Type: 
  Country: None (occurrence: None)
  Receive Date: 20080612
  Receipt Date: 20080606
  Transmission Date: 20081010
  Serious: Yes (Life-Threatening, Hospitalization, Other)
  Sender: FDA-Public Use
  Company Number: GB-TEVA-151254ISR

PATIENT
  Age: 39 Year
  Sex: Female

DRUGS (2)
  1. DICLOFENAC [Suspect]
  2. CLOPIDOGREL [Suspect]
     Route: 048

REACTIONS (3)
  - CHEST PAIN [None]
  - LOSS OF CONSCIOUSNESS [None]
  - PERICARDIAL HAEMORRHAGE [None]
